FAERS Safety Report 12529766 (Version 4)
Quarter: 2017Q4

REPORT INFORMATION
  Report Type: Report from Study
  Country: US (occurrence: US)
  Receive Date: 20160706
  Receipt Date: 20171123
  Transmission Date: 20180320
  Serious: Yes (Hospitalization, Other)
  Sender: FDA-Public Use
  Company Number: US-AMGEN-USASL2016082700

PATIENT
  Age: 70 Year
  Sex: Male
  Weight: 79.83 kg

DRUGS (9)
  1. REPATHA [Suspect]
     Active Substance: EVOLOCUMAB
     Indication: HYPERLIPIDAEMIA
  2. CLARITIN [Concomitant]
     Active Substance: LORATADINE
     Dosage: 10 MG, AS NECESSARY (PRN)
     Route: 048
  3. ASPIRIN. [Concomitant]
     Active Substance: ASPIRIN
     Dosage: 81 MG, QD
     Route: 048
  4. COENZYME Q10 [Concomitant]
     Active Substance: UBIDECARENONE
     Dosage: 100 MG, QD
     Route: 048
  5. REPATHA [Suspect]
     Active Substance: EVOLOCUMAB
     Indication: BLOOD CHOLESTEROL ABNORMAL
     Dosage: 140 MG, Q2WK
     Route: 058
     Dates: start: 201601, end: 201606
  6. FLOMAX [Concomitant]
     Active Substance: TAMSULOSIN HYDROCHLORIDE
     Dosage: 0.4 MG, QD
     Route: 048
  7. OMEPRAZOLE. [Concomitant]
     Active Substance: OMEPRAZOLE
     Dosage: 20 MG, QD
     Route: 048
  8. FINASTERIDE. [Concomitant]
     Active Substance: FINASTERIDE
     Dosage: 5 MG, QD
     Route: 048
  9. LIMBREL [Concomitant]
     Active Substance: DIETARY SUPPLEMENT\FLAVOCOXID
     Dosage: 250 UNK, Q12H
     Route: 048

REACTIONS (31)
  - Pulmonary oedema [Unknown]
  - Skin abrasion [Unknown]
  - Eosinophil count increased [Unknown]
  - Blood pressure diastolic increased [Unknown]
  - Lymphocyte count decreased [Unknown]
  - Blood glucose increased [Unknown]
  - Blood albumin decreased [Unknown]
  - Drug hypersensitivity [Recovering/Resolving]
  - Dehydration [Recovering/Resolving]
  - Respiratory rate increased [Unknown]
  - Blood pressure systolic increased [Unknown]
  - Blood urine present [Unknown]
  - Weight decreased [Unknown]
  - Blood alkaline phosphatase increased [Unknown]
  - Ill-defined disorder [Recovered/Resolved]
  - Fall [Unknown]
  - Heart rate increased [Unknown]
  - Chills [Recovering/Resolving]
  - Blood chloride decreased [Unknown]
  - Hepatic enzyme increased [Unknown]
  - Asthenia [Recovering/Resolving]
  - Diarrhoea [Recovered/Resolved]
  - Mean arterial pressure increased [Unknown]
  - Neutrophil count increased [Unknown]
  - White blood cell count increased [Recovering/Resolving]
  - Pyrexia [Recovering/Resolving]
  - Rales [Unknown]
  - Liver function test increased [Recovering/Resolving]
  - Night sweats [Recovered/Resolved]
  - Feeling abnormal [Recovering/Resolving]
  - Myalgia [Unknown]

NARRATIVE: CASE EVENT DATE: 2016
